FAERS Safety Report 7679229-5 (Version None)
Quarter: 2011Q3

REPORT INFORMATION
  Report Type: 
  Country: None (occurrence: None)
  Receive Date: 20110812
  Receipt Date: 20110803
  Transmission Date: 20111222
  Serious: Yes (Hospitalization)
  Sender: FDA-Public Use
  Company Number: FR-JNJFOC-20110803655

PATIENT
  Age: 86 Year
  Sex: Female

DRUGS (8)
  1. MEMANTINE HYDROCHLORIDE [Concomitant]
     Route: 048
  2. ZOPICLONE [Concomitant]
     Route: 065
  3. EXELON [Concomitant]
     Route: 065
  4. FUROSEMIDE [Concomitant]
     Route: 065
  5. RISPERDAL [Suspect]
     Indication: PRODUCT USED FOR UNKNOWN INDICATION
     Route: 048
     Dates: start: 20091101
  6. ASPIRIN [Concomitant]
  7. CALCIUM CARBONATE [Concomitant]
     Route: 065
  8. ASPIRIN [Concomitant]

REACTIONS (3)
  - FALL [None]
  - VIITH NERVE PARALYSIS [None]
  - TRANSIENT ISCHAEMIC ATTACK [None]
